FAERS Safety Report 18368429 (Version 1)
Quarter: 2020Q4

REPORT INFORMATION
  Report Type: Spontaneous
  Country: GB (occurrence: GB)
  Receive Date: 20201009
  Receipt Date: 20201009
  Transmission Date: 20210114
  Serious: Yes (Other)
  Sender: FDA-Public Use
  Company Number: GB-BAXTER-2020BAX020564

PATIENT
  Sex: Female

DRUGS (2)
  1. SODIUM CHLORIDE INTRAVENOUS INFUSION BP 0.9% W/V [Suspect]
     Active Substance: SODIUM CHLORIDE
     Indication: MEDICATION DILUTION
     Dosage: VIA SV100.
     Route: 042
     Dates: start: 20200929, end: 20201005
  2. CEFTAZIDIME. [Suspect]
     Active Substance: CEFTAZIDIME
     Indication: RESPIRATORY DISORDER
     Dosage: VIA SV100.
     Route: 042
     Dates: start: 20200929, end: 20201005

REACTIONS (1)
  - Drug hypersensitivity [Unknown]
